FAERS Safety Report 13733761 (Version 2)
Quarter: 2017Q3

REPORT INFORMATION
  Report Type: Spontaneous
  Country: CN (occurrence: CN)
  Receive Date: 20170707
  Receipt Date: 20170710
  Transmission Date: 20171127
  Serious: Yes (Death, Other)
  Sender: FDA-Public Use
  Company Number: ALCN2017CN004277

PATIENT
  Age: 52 Year
  Sex: Male

DRUGS (1)
  1. FLUORESCITE [Suspect]
     Active Substance: FLUORESCEIN SODIUM
     Indication: ANGIOGRAM RETINA
     Dosage: 3 ML, ONCE/SINGLE
     Route: 042
     Dates: start: 20170707

REACTIONS (8)
  - Ventricular fibrillation [Recovered/Resolved]
  - Laryngeal oedema [Fatal]
  - Salivary hypersecretion [Fatal]
  - Cardiac arrest [Unknown]
  - Dyspnoea [Fatal]
  - Cough [Fatal]
  - Ventricular fibrillation [Not Recovered/Not Resolved]
  - Respiratory arrest [Fatal]

NARRATIVE: CASE EVENT DATE: 20170707
